FAERS Safety Report 6437884-1 (Version None)
Quarter: 2009Q4

REPORT INFORMATION
  Report Type: 
  Country: None (occurrence: None)
  Receive Date: 20091112
  Receipt Date: 20081015
  Transmission Date: 20100525
  Serious: No
  Sender: FDA-Public Use
  Company Number: US-ASTRAZENECA-2009UW15499

PATIENT
  Age: 64 Year
  Sex: Female

DRUGS (3)
  1. PRILOSEC OTC [Suspect]
     Indication: GASTROOESOPHAGEAL REFLUX DISEASE
     Dosage: 1 TABLET, 1 /DAY FOR 1095 DAYS
     Route: 048
     Dates: start: 20051015, end: 20081014
  2. ANTIHYPERTENSIVES [Concomitant]
  3. CRESTOR [Concomitant]

REACTIONS (2)
  - HYPOGEUSIA [None]
  - HYPOSMIA [None]
